FAERS Safety Report 6121057-6 (Version None)
Quarter: 2009Q1

REPORT INFORMATION
  Report Type: 
  Country: None (occurrence: None)
  Receive Date: 20090317
  Receipt Date: 20090306
  Transmission Date: 20090719
  Serious: Yes (Life-Threatening, Hospitalization)
  Sender: FDA-Public Use
  Company Number: GB-BAXTER-2009BH003752

PATIENT
  Age: 62 Year
  Sex: Female

DRUGS (9)
  1. CYCLOPHOSPHAMIDE [Suspect]
     Indication: BREAST CANCER
     Route: 042
     Dates: start: 20081209, end: 20090211
  2. IXABEPILONE [Suspect]
     Indication: BREAST CANCER
     Route: 042
     Dates: start: 20090304, end: 20090304
  3. DOXORUBICIN HCL [Suspect]
     Indication: BREAST CANCER
     Route: 042
     Dates: start: 20081209, end: 20090211
  4. CHLORPHENIRAMINE MALEATE [Concomitant]
     Route: 048
     Dates: start: 20090304
  5. RANITIDINE [Concomitant]
     Route: 048
     Dates: start: 20090304
  6. DEXAMETHASONE TAB [Concomitant]
     Indication: NAUSEA
     Route: 042
     Dates: start: 20090304
  7. ONDANSETRON [Concomitant]
     Indication: NAUSEA
     Route: 042
     Dates: start: 20090304
  8. PAROXETINE HCL [Concomitant]
     Dates: start: 20070101
  9. ATENOLOL [Concomitant]
     Dates: start: 20081201

REACTIONS (3)
  - BLOOD PRESSURE INCREASED [None]
  - HYPERSENSITIVITY [None]
  - PULMONARY EMBOLISM [None]
